FAERS Safety Report 15988315 (Version 2)
Quarter: 2020Q2

REPORT INFORMATION
  Report Type: Spontaneous
  Country: US (occurrence: US)
  Receive Date: 20190221
  Receipt Date: 20200406
  Transmission Date: 20200713
  Serious: No
  Sender: FDA-Public Use
  Company Number: US-AMGEN-USASP2019024223

PATIENT
  Age: 72 Year
  Sex: Female

DRUGS (1)
  1. PROLIA [Suspect]
     Active Substance: DENOSUMAB
     Indication: OSTEOPOROSIS POSTMENOPAUSAL
     Dosage: 60 MG, Q6MO
     Route: 065
     Dates: start: 2016

REACTIONS (10)
  - Sinus disorder [Recovering/Resolving]
  - Back disorder [Recovered/Resolved]
  - Back pain [Unknown]
  - Fall [Unknown]
  - Mouth injury [Unknown]
  - Pain [Unknown]
  - Nasal injury [Unknown]
  - Sensory disturbance [Recovered/Resolved]
  - Arthropathy [Recovered/Resolved]
  - Tooth injury [Unknown]

NARRATIVE: CASE EVENT DATE: 2017
